FAERS Safety Report 9836955 (Version 3)
Quarter: 2014Q1

REPORT INFORMATION
  Report Type: Spontaneous
  Country: US (occurrence: US)
  Receive Date: 20140123
  Receipt Date: 20140317
  Transmission Date: 20141002
  Serious: No
  Sender: FDA-Public Use
  Company Number: US-PFIZER INC-2014010452

PATIENT
  Sex: Female

DRUGS (2)
  1. LYRICA [Suspect]
     Indication: SHOULDER ARTHROPLASTY
     Dosage: UNK
  2. VICODIN [Concomitant]

REACTIONS (1)
  - Off label use [Unknown]
